FAERS Safety Report 13701788 (Version 2)
Quarter: 2017Q3

REPORT INFORMATION
  Report Type: Spontaneous
  Country: US (occurrence: US)
  Receive Date: 20170629
  Receipt Date: 20170712
  Transmission Date: 20171127
  Serious: Yes (Other)
  Sender: FDA-Public Use
  Company Number: US-TEVA-782273USA

PATIENT
  Sex: Female

DRUGS (1)
  1. COPAXONE [Suspect]
     Active Substance: GLATIRAMER ACETATE
     Dosage: UNKNOWN DOSAGE STRENGTH
     Route: 065

REACTIONS (4)
  - Multiple sclerosis relapse [Unknown]
  - Adverse event [Unknown]
  - Blindness [Unknown]
  - Inappropriate schedule of drug administration [Unknown]
